FAERS Safety Report 9020190 (Version 1)
Quarter: 2013Q1

REPORT INFORMATION
  Report Type: Spontaneous
  Country: US (occurrence: US)
  Receive Date: 20130119
  Receipt Date: 20130119
  Transmission Date: 20140127
  Serious: No
  Sender: FDA-Public Use
  Company Number: US-ALLERGAN-1210098US

PATIENT
  Sex: Female

DRUGS (6)
  1. BOTOX COSMETIC [Suspect]
     Indication: SKIN WRINKLING
     Dosage: UNK, SINGLE
     Route: 030
     Dates: start: 20120628, end: 20120628
  2. BOTOX COSMETIC [Suspect]
     Indication: SKIN WRINKLING
     Dosage: UNK, SINGLE
     Route: 030
     Dates: start: 20120711, end: 20120711
  3. BOTOX COSMETIC [Suspect]
     Dosage: UNK, SINGLE
     Route: 030
     Dates: start: 20120716, end: 20120716
  4. GINGKO BILOBA WITH ZINC [Concomitant]
     Indication: SUPPLEMENTATION THERAPY
     Dosage: 1 N/A, UNK
  5. B VITAMIN COMP [Concomitant]
     Indication: NUTRITIONAL SUPPLEMENTATION
     Dosage: 1 N/A, QD
  6. DIAZIDE                            /00081101/ [Concomitant]
     Indication: DIURETIC THERAPY
     Dosage: 1 N/A, UNK

REACTIONS (3)
  - Dysphonia [Unknown]
  - Skin tightness [Unknown]
  - Swelling face [Unknown]
